FAERS Safety Report 9839287 (Version 2)
Quarter: 2014Q1

REPORT INFORMATION
  Report Type: Spontaneous
  Country: US (occurrence: US)
  Receive Date: 20140123
  Receipt Date: 20140304
  Transmission Date: 20141002
  Serious: Yes (Other)
  Sender: FDA-Public Use
  Company Number: PHEH2014US001525

PATIENT
  Sex: Female

DRUGS (11)
  1. DIOVAN [Suspect]
     Dosage: 160 MG, QD
  2. LANTUS [Concomitant]
     Dosage: 70 U, QD (QPM)
  3. METFORMIN [Concomitant]
     Dosage: 4 DF (500MG), QD
  4. SIMVASTATIN [Concomitant]
     Dosage: UNK UKN, UNK
  5. GLIMEPIRIDE [Concomitant]
     Dosage: UNK UKN, UNK
  6. METOPROLOL [Concomitant]
     Dosage: UNK UKN, UNK
  7. VITAMIN C [Concomitant]
     Dosage: UNK UKN, UNK
  8. SUPER B COMPLX [Concomitant]
     Dosage: UNK UKN, UNK
  9. CALCIUM [Concomitant]
     Dosage: UNK UKN, UNK
  10. MULTI-VIT [Concomitant]
     Dosage: UNK UKN, UNK
  11. VITAMIN D3 [Concomitant]

REACTIONS (2)
  - Diabetes mellitus [Unknown]
  - Oropharyngeal pain [Unknown]
